FAERS Safety Report 20701549 (Version 1)
Quarter: 2022Q2

REPORT INFORMATION
  Report Type: Spontaneous
  Country: US (occurrence: US)
  Receive Date: 20220412
  Receipt Date: 20220412
  Transmission Date: 20220721
  Serious: No
  Sender: FDA-Public Use
  Company Number: US-PFIZER INC-202101081853

PATIENT
  Age: 70 Year
  Sex: Female

DRUGS (8)
  1. IBRANCE [Suspect]
     Active Substance: PALBOCICLIB
     Indication: Breast cancer female
     Dosage: 100 MG, CYCLIC [1 DAILY FOR 21 DAYS]
     Route: 048
     Dates: start: 202105
  2. IBRANCE [Suspect]
     Active Substance: PALBOCICLIB
     Indication: Illness
     Dosage: 100 MG, CYCLIC (21 DAYS ON, 7 DAYS OFF)
     Route: 048
     Dates: start: 202105
  3. ATORVASTATIN CALCIUM [Concomitant]
     Active Substance: ATORVASTATIN CALCIUM
     Dosage: UNK
  4. FULVESTRANT [Concomitant]
     Active Substance: FULVESTRANT
     Dosage: UNK [250 MG/5ML SYRINGE]
  5. LEXAPRO [Concomitant]
     Active Substance: ESCITALOPRAM OXALATE
     Dosage: UNK
  6. MUCINEX [Concomitant]
     Active Substance: GUAIFENESIN
     Dosage: 1200 MG, 2X/DAY [12H]
  7. POTASSIUM [Concomitant]
     Active Substance: POTASSIUM
     Dosage: 595 MG (595(99) MG
  8. VITAMIN D NOS [Concomitant]
     Active Substance: VITAMIN D NOS
     Dosage: UNK

REACTIONS (5)
  - Product dose omission issue [Unknown]
  - Memory impairment [Unknown]
  - Fatigue [Unknown]
  - Mouth ulceration [Unknown]
  - Fatigue [Unknown]

NARRATIVE: CASE EVENT DATE: 20210101
